FAERS Safety Report 8771499 (Version 2)
Quarter: 2012Q4

REPORT INFORMATION
  Report Type: 
  Country: LT (occurrence: LT)
  Receive Date: 20120906
  Receipt Date: 20120924
  Transmission Date: 20130627
  Serious: Yes (Other)
  Sender: FDA-Public Use
  Company Number: LT-GLAXOSMITHKLINE-B0828181A

PATIENT
  Age: 25 Year
  Sex: Female

DRUGS (1)
  1. TROBALT [Suspect]
     Indication: PARTIAL SEIZURES
     Route: 065

REACTIONS (2)
  - Epilepsy [Recovering/Resolving]
  - Micturition frequency decreased [Recovering/Resolving]
